FAERS Safety Report 6517961-7 (Version None)
Quarter: 2009Q4

REPORT INFORMATION
  Report Type: 
  Country: None (occurrence: None)
  Receive Date: 20091224
  Receipt Date: 20091216
  Transmission Date: 20100525
  Serious: Yes (Other)
  Sender: FDA-Public Use
  Company Number: US-JNJFOC-20081104706

PATIENT
  Age: 6 Decade
  Sex: Female

DRUGS (2)
  1. DORIBAX [Suspect]
     Indication: SHUNT INFECTION
     Route: 041
  2. UNSPECIFIED ANTICONVULSANT [Concomitant]
     Route: 065

REACTIONS (1)
  - CONVULSION [None]
